FAERS Safety Report 9345652 (Version 4)
Quarter: 2014Q1

REPORT INFORMATION
  Report Type: Report from Study
  Country: US (occurrence: US)
  Receive Date: 20130613
  Receipt Date: 20140312
  Transmission Date: 20141002
  Serious: Yes (Death, Hospitalization, Other)
  Sender: FDA-Public Use
  Company Number: US-ALEXION PHARMACEUTICALS INC.-A201301311

PATIENT
  Age: 50 Year
  Sex: Male

DRUGS (1)
  1. SOLIRIS [Suspect]
     Indication: PAROXYSMAL NOCTURNAL HAEMOGLOBINURIA
     Dosage: UNK
     Route: 042

REACTIONS (6)
  - Death [Fatal]
  - Multi-organ failure [Unknown]
  - Blood product transfusion dependent [Unknown]
  - Pyrexia [Unknown]
  - Haemoglobin decreased [Unknown]
  - Cellulitis [Unknown]
